FAERS Safety Report 21966865 (Version 1)
Quarter: 2023Q1

REPORT INFORMATION
  Report Type: Report from Study
  Country: US (occurrence: US)
  Receive Date: 20230208
  Receipt Date: 20230208
  Transmission Date: 20230417
  Serious: Yes (Hospitalization)
  Sender: FDA-Public Use
  Company Number: US-ABBVIE-4298770

PATIENT
  Age: 52 Year
  Sex: Male

DRUGS (1)
  1. SKYRIZI [Suspect]
     Active Substance: RISANKIZUMAB-RZAA
     Indication: Crohn^s disease
     Route: 058
     Dates: start: 20221019, end: 20221210

REACTIONS (7)
  - Biliary obstruction [Unknown]
  - Lethargy [Unknown]
  - International normalised ratio increased [Unknown]
  - Hospitalisation [Recovered/Resolved]
  - Drug ineffective [Unknown]
  - Malaise [Unknown]
  - Jaundice [Unknown]

NARRATIVE: CASE EVENT DATE: 20221101
